FAERS Safety Report 13884287 (Version 1)
Quarter: 2017Q3

REPORT INFORMATION
  Report Type: Other
  Country: US (occurrence: US)
  Receive Date: 20170821
  Receipt Date: 20170821
  Transmission Date: 20171127
  Serious: No
  Sender: FDA-Public Use
  Company Number: US-LUPIN PHARMACEUTICALS INC.-2017-04589

PATIENT

DRUGS (1)
  1. LISINOPRIL TABLETS USP, 10MG [Suspect]
     Active Substance: LISINOPRIL
     Indication: PRODUCT USED FOR UNKNOWN INDICATION
     Dosage: UNK
     Route: 065

REACTIONS (8)
  - Asthenia [Unknown]
  - Pruritus [Unknown]
  - Peripheral swelling [Unknown]
  - Dizziness [Unknown]
  - Oropharyngeal pain [Unknown]
  - Somnolence [Unknown]
  - Dysphonia [Unknown]
  - Insomnia [Unknown]
